FAERS Safety Report 18180855 (Version 1)
Quarter: 2020Q3

REPORT INFORMATION
  Report Type: Spontaneous
  Country: CA (occurrence: CA)
  Receive Date: 20200821
  Receipt Date: 20200821
  Transmission Date: 20201103
  Serious: Yes (Hospitalization, Other)
  Sender: FDA-Public Use
  Company Number: CA-ACCORD-196162

PATIENT
  Age: 57 Year
  Sex: Female
  Weight: 84 kg

DRUGS (2)
  1. KEYTRUDA [Concomitant]
     Active Substance: PEMBROLIZUMAB
  2. CARBOPLATIN. [Suspect]
     Active Substance: CARBOPLATIN
     Indication: LUNG NEOPLASM
     Dosage: 1 EVERY 21 DAYS
     Route: 042

REACTIONS (4)
  - Febrile neutropenia [Recovered/Resolved]
  - Beta haemolytic streptococcal infection [Recovered/Resolved]
  - Off label use [Unknown]
  - Blood culture positive [Recovered/Resolved]
